FAERS Safety Report 18618140 (Version 1)
Quarter: 2020Q4

REPORT INFORMATION
  Report Type: Spontaneous
  Country: US (occurrence: US)
  Receive Date: 20201215
  Receipt Date: 20201215
  Transmission Date: 20210114
  Serious: No
  Sender: FDA-Public Use
  Company Number: US-APOTEX-2020AP022746

PATIENT
  Age: 22 Year
  Sex: Female

DRUGS (1)
  1. CLEAR NICOTINE PATCH [Suspect]
     Active Substance: NICOTINE
     Indication: NICOTINE DEPENDENCE
     Dosage: 1 DOSAGE FORM, QD
     Route: 062
     Dates: start: 20201118

REACTIONS (4)
  - Anxiety [Not Recovered/Not Resolved]
  - Energy increased [Not Recovered/Not Resolved]
  - Heart rate increased [Not Recovered/Not Resolved]
  - Tremor [Not Recovered/Not Resolved]

NARRATIVE: CASE EVENT DATE: 20201118
